FAERS Safety Report 14317244 (Version 2)
Quarter: 2017Q4

REPORT INFORMATION
  Report Type: Spontaneous
  Country: US (occurrence: US)
  Receive Date: 20171222
  Receipt Date: 20171229
  Transmission Date: 20180321
  Serious: No
  Sender: FDA-Public Use
  Company Number: US-HORIZON-PRO-0125-2017

PATIENT
  Age: 2 Year
  Sex: Female

DRUGS (4)
  1. PROCYSBI [Suspect]
     Active Substance: CYSTEAMINE BITARTRATE
     Indication: CYSTINOSIS
     Dosage: FIVE 75 MG CAPSULES IN THE MORNING AND IN THE EVENING EACH
     Route: 048
  2. CALCIUM [Concomitant]
     Active Substance: CALCIUM
  3. SODIUM BICARBONATE. [Concomitant]
     Active Substance: SODIUM BICARBONATE
  4. VITAMIN D [Concomitant]
     Active Substance: CHOLECALCIFEROL

REACTIONS (2)
  - Product odour abnormal [Unknown]
  - Nausea [Recovered/Resolved]
